FAERS Safety Report 9277302 (Version 1)
Quarter: 2013Q2

REPORT INFORMATION
  Report Type: Spontaneous
  Country: US (occurrence: None)
  Receive Date: 20130502
  Receipt Date: 20130502
  Transmission Date: 20140414
  Serious: No
  Sender: FDA-Public Use
  Company Number: None

PATIENT
  Sex: Male

DRUGS (1)
  1. XTANDI 40MG ASTELLAS [Suspect]
     Route: 048
     Dates: start: 20121107

REACTIONS (6)
  - Urine odour abnormal [None]
  - Flatulence [None]
  - Abdominal pain upper [None]
  - Chromaturia [None]
  - Loose tooth [None]
  - Chest discomfort [None]
